FAERS Safety Report 9828012 (Version 1)
Quarter: 2014Q1

REPORT INFORMATION
  Report Type: Spontaneous
  Country: US (occurrence: None)
  Receive Date: 20140116
  Receipt Date: 20140116
  Transmission Date: 20141002
  Serious: Yes (Hospitalization)
  Sender: FDA-Public Use
  Company Number: None

PATIENT
  Age: 66 Year
  Sex: Male
  Weight: 71.8 kg

DRUGS (2)
  1. EPTIFIBATIDE [Suspect]
     Indication: ACUTE MYOCARDIAL INFARCTION
     Route: 042
     Dates: start: 20120822, end: 20120823
  2. HEPARIN [Suspect]
     Route: 042
     Dates: start: 20120822, end: 20120824

REACTIONS (1)
  - Haemarthrosis [None]
